FAERS Safety Report 5846892-0 (Version None)
Quarter: 2008Q3

REPORT INFORMATION
  Report Type: 
  Country: None (occurrence: None)
  Receive Date: 20080815
  Receipt Date: 20080809
  Transmission Date: 20090109
  Serious: Yes (Other)
  Sender: FDA-Public Use
  Company Number: US-PFIZER INC-2008035424

PATIENT
  Sex: Female
  Weight: 78 kg

DRUGS (3)
  1. CHANTIX [Suspect]
     Indication: SMOKING CESSATION THERAPY
     Route: 048
  2. EFFEXOR XR [Interacting]
     Indication: BIPOLAR DISORDER
  3. DESOGESTREL AND ETHINYL ESTRADIOL [Concomitant]
     Indication: CONTRACEPTION

REACTIONS (5)
  - AGITATION [None]
  - ANXIETY [None]
  - DRUG INTERACTION [None]
  - MANIA [None]
  - UNEVALUABLE EVENT [None]
